FAERS Safety Report 12527203 (Version 1)
Quarter: 2016Q3

REPORT INFORMATION
  Report Type: Spontaneous
  Country: US (occurrence: US)
  Receive Date: 20160705
  Receipt Date: 20160705
  Transmission Date: 20161109
  Serious: No
  Sender: FDA-Public Use
  Company Number: US-BAYER-2016-129110

PATIENT
  Sex: Female

DRUGS (2)
  1. CLARITIN [Suspect]
     Active Substance: LORATADINE
     Indication: HEADACHE
  2. CLARITIN [Suspect]
     Active Substance: LORATADINE
     Indication: HEAD DISCOMFORT
     Dosage: 1 DF, UNK
     Route: 048

REACTIONS (3)
  - Therapeutic response unexpected [None]
  - Product use issue [None]
  - Drug ineffective [None]
